FAERS Safety Report 13473126 (Version 2)
Quarter: 2017Q2

REPORT INFORMATION
  Report Type: Spontaneous
  Country: US (occurrence: US)
  Receive Date: 20170424
  Receipt Date: 20170426
  Transmission Date: 20170830
  Serious: No
  Sender: FDA-Public Use
  Company Number: US-MISSION PHARMACAL COMPANY-1065773

PATIENT
  Age: 37 Year
  Sex: Male

DRUGS (1)
  1. THIOLA [Suspect]
     Active Substance: TIOPRONIN
     Indication: CALCULUS URINARY
     Route: 048
     Dates: start: 20141010

REACTIONS (3)
  - Bone pain [Unknown]
  - Arthralgia [Unknown]
  - Drug dose omission [Unknown]
